FAERS Safety Report 8075750-9 (Version None)
Quarter: 2012Q1

REPORT INFORMATION
  Report Type: 
  Country: None (occurrence: None)
  Receive Date: 20120127
  Receipt Date: 20120123
  Transmission Date: 20120608
  Serious: No
  Sender: FDA-Public Use
  Company Number: US-BAYER-2012-008396

PATIENT
  Age: 63 Year
  Weight: 91 kg

DRUGS (12)
  1. MULTI-VITAMIN [Concomitant]
  2. VITAMIN D [Concomitant]
  3. ALEVE (CAPLET) [Suspect]
     Indication: HEADACHE
     Route: 048
  4. COQ10 [Concomitant]
  5. SIMVASTATIN [Concomitant]
  6. ALLEGRA [Concomitant]
  7. ANDROGEL [Concomitant]
  8. ATENOLOL [Concomitant]
  9. ZANTAC [Concomitant]
  10. HYDROCHLOROTHIAZIDE [Concomitant]
  11. FLONASE [Concomitant]
  12. CONCERTA [Concomitant]

REACTIONS (1)
  - URTICARIA [None]
